FAERS Safety Report 8382402-4 (Version None)
Quarter: 2012Q2

REPORT INFORMATION
  Report Type: 
  Country: None (occurrence: None)
  Receive Date: 20120524
  Receipt Date: 20120516
  Transmission Date: 20120825
  Serious: Yes (Life-Threatening, Hospitalization)
  Sender: FDA-Public Use
  Company Number: PHHY2012MY039907

PATIENT
  Sex: Male
  Weight: 69 kg

DRUGS (4)
  1. AMLODIPINE BESYLATE [Concomitant]
     Indication: HYPERTENSION
     Dosage: 10 MG, UNK
     Route: 048
     Dates: start: 20050101
  2. TASIGNA [Suspect]
     Indication: CHRONIC MYELOID LEUKAEMIA
     Dosage: 400 MG, BID
     Dates: start: 20120222, end: 20120420
  3. ATENOLOL [Concomitant]
     Indication: HYPERTENSION
     Dosage: 100 MG, UNK
     Route: 048
     Dates: start: 20050101
  4. LOVASTATIN [Concomitant]
     Indication: DYSLIPIDAEMIA
     Dosage: 20 MG, UNK
     Route: 048
     Dates: start: 20050101

REACTIONS (8)
  - NEUTROPENIC SEPSIS [None]
  - HAEMORRHAGIC DIATHESIS [None]
  - BONE MARROW FAILURE [None]
  - THROMBOCYTOPENIA [None]
  - LEUKOPENIA [None]
  - ANAEMIA [None]
  - PANCYTOPENIA [None]
  - PYREXIA [None]
